FAERS Safety Report 14782408 (Version 2)
Quarter: 2018Q4

REPORT INFORMATION
  Report Type: Spontaneous
  Country: FR (occurrence: FR)
  Receive Date: 20180420
  Receipt Date: 20181024
  Transmission Date: 20190204
  Serious: Yes (Hospitalization)
  Sender: FDA-Public Use
  Company Number: FR-MERCK KGAA-2046123

PATIENT
  Age: 52 Year
  Sex: Female

DRUGS (1)
  1. EUTHYROX [Suspect]
     Active Substance: LEVOTHYROXINE SODIUM
     Indication: PRODUCT USED FOR UNKNOWN INDICATION

REACTIONS (23)
  - Hypersensitivity [None]
  - Nail ridging [None]
  - Feeling abnormal [None]
  - Anxiety [None]
  - Musculoskeletal stiffness [None]
  - Migraine [None]
  - Social avoidant behaviour [None]
  - Metrorrhagia [None]
  - Alopecia [None]
  - Pruritus [None]
  - Fall [None]
  - Pain [None]
  - Decreased activity [None]
  - Insomnia [None]
  - Dizziness [None]
  - Balance disorder [None]
  - Hot flush [None]
  - Nail disorder [None]
  - Fatigue [None]
  - Memory impairment [None]
  - Loss of personal independence in daily activities [None]
  - Blood thyroid stimulating hormone increased [None]
  - Tachycardia [None]

NARRATIVE: CASE EVENT DATE: 201706
